FAERS Safety Report 14435732 (Version 1)
Quarter: 2018Q1

REPORT INFORMATION
  Report Type: Spontaneous
  Country: US (occurrence: US)
  Receive Date: 20180124
  Receipt Date: 20180124
  Transmission Date: 20180509
  Serious: Yes (Hospitalization)
  Sender: FDA-Public Use
  Company Number: None

PATIENT
  Age: 69 Year
  Sex: Male
  Weight: 88.9 kg

DRUGS (4)
  1. BONIVA [Concomitant]
     Active Substance: IBANDRONATE SODIUM
  2. 5.6%CBD/3.7%THC DRONABINOL (VAPOR) [Suspect]
     Active Substance: CANNABIDIOL\DRONABINOL
     Dosage: 5MG 1 X PER DAY PILL
     Dates: start: 20180104
  3. NIDA CANNABIS/DRONABINOL [Suspect]
     Active Substance: DRONABINOL
     Indication: BACK PAIN
     Dosage: 5.6%CBD/3.7%THC 1X PER DAY VAPORIZED CANNABIS
     Dates: start: 20171101
  4. LASIX [Concomitant]
     Active Substance: FUROSEMIDE

REACTIONS (2)
  - Influenza [None]
  - Cellulitis [None]

NARRATIVE: CASE EVENT DATE: 20180104
